FAERS Safety Report 6018857-X (Version None)
Quarter: 2008Q4

REPORT INFORMATION
  Report Type: 
  Country: None (occurrence: None)
  Receive Date: 20081222
  Receipt Date: 20081222
  Transmission Date: 20090506
  Serious: Yes (Hospitalization)
  Sender: FDA-Public Use
  Company Number: None

PATIENT
  Age: 35 Year
  Sex: Female
  Weight: 74 kg

DRUGS (2)
  1. LEVETIRACETAM [Suspect]
     Dosage: 500MG FOUR TIMES DAILY PO 106 IN BTL; FILLED 12/4/08
     Route: 048
  2. OXCARBAZEPINE [Suspect]
     Dosage: 600MG TWICE DAILY PO 92 IN BTL; FILLED 12/4/08
     Route: 048

REACTIONS (4)
  - CONVULSION [None]
  - DRUG DISPENSING ERROR [None]
  - MEDICATION ERROR [None]
  - WRONG DRUG ADMINISTERED [None]
